FAERS Safety Report 8622512-7 (Version None)
Quarter: 2012Q3

REPORT INFORMATION
  Report Type: 
  Country: None (occurrence: None)
  Receive Date: 20120827
  Receipt Date: 20120823
  Transmission Date: 20120928
  Serious: Yes (Other)
  Sender: FDA-Public Use
  Company Number: US-PFIZER INC-2012207753

PATIENT
  Sex: Male

DRUGS (3)
  1. EFFEXOR XR [Suspect]
     Dosage: UNK
  2. VENLAFAXINE HCL [Suspect]
     Dosage: 150 MG, UNK
  3. VENLAFAXINE HCL [Suspect]
     Dosage: UNK

REACTIONS (2)
  - AGGRESSION [None]
  - DRUG EFFECT DECREASED [None]
